FAERS Safety Report 4861757-9 (Version None)
Quarter: 2005Q4

REPORT INFORMATION
  Report Type: 
  Country: None (occurrence: None)
  Receive Date: 20051220
  Receipt Date: 20051214
  Transmission Date: 20060501
  Serious: Yes (Life-Threatening)
  Sender: FDA-Public Use
  Company Number: FR-MERCK-0512FRA00062

PATIENT
  Age: 83 Year
  Sex: Female

DRUGS (2)
  1. VIOXX [Suspect]
     Indication: OSTEOARTHRITIS
     Route: 048
     Dates: start: 20011029, end: 20021001
  2. ASPIRIN [Concomitant]
     Indication: CAROTID ARTERY ATHEROMA
     Route: 048
     Dates: start: 20010101, end: 20040501

REACTIONS (1)
  - ISCHAEMIC STROKE [None]
